FAERS Safety Report 9661332 (Version 3)
Quarter: 2013Q4

REPORT INFORMATION
  Report Type: Report from Study
  Country: KR (occurrence: KR)
  Receive Date: 20131031
  Receipt Date: 20131210
  Transmission Date: 20140711
  Serious: Yes (Hospitalization)
  Sender: FDA-Public Use
  Company Number: KR-ASTRAZENECA-2013SE78197

PATIENT
  Age: 15175 Day
  Sex: Female
  Weight: 102.9 kg

DRUGS (7)
  1. BRILINTA [Suspect]
     Indication: ACUTE MYOCARDIAL INFARCTION
     Route: 048
     Dates: start: 20131001
  2. DICHLOZID [Concomitant]
     Indication: NEPHROPATHY
     Dates: start: 20130404
  3. ATACAND [Concomitant]
     Indication: HYPERTENSION
     Dates: start: 20130404
  4. LASIX [Concomitant]
     Indication: NEPHROPATHY
  5. LIVALO [Concomitant]
     Indication: HYPERLIPIDAEMIA
     Dates: start: 20130902
  6. GLUPA [Concomitant]
     Indication: DIABETES MELLITUS
  7. GLUPA [Concomitant]
     Indication: DIABETES MELLITUS
     Dates: start: 20131009

REACTIONS (1)
  - Diabetes mellitus [Recovered/Resolved]
